FAERS Safety Report 24791715 (Version 1)
Quarter: 2024Q4

REPORT INFORMATION
  Report Type: Spontaneous
  Country: US (occurrence: US)
  Receive Date: 20241231
  Receipt Date: 20241231
  Transmission Date: 20250114
  Serious: Yes (Death, Other)
  Sender: GLENMARK
  Company Number: US-GLENMARK PHARMACEUTICALS-2024GMK096660

PATIENT

DRUGS (9)
  1. GABAPENTIN [Suspect]
     Active Substance: GABAPENTIN
     Indication: Product used for unknown indication
     Dosage: UNK (INGESTION) (SUSPECTED INGESTION INCLUDED UP TO 300 TABLETS)
     Route: 048
  2. BUPROPION [Suspect]
     Active Substance: BUPROPION
     Indication: Product used for unknown indication
     Dosage: UNK (INGESTION)
     Route: 048
  3. BUPROPION [Suspect]
     Active Substance: BUPROPION
     Dosage: UNK (INGESTION)
     Route: 048
  4. BUPROPION [Suspect]
     Active Substance: BUPROPION
     Dosage: UNK (INGESTION)
     Route: 048
  5. ALPRAZOLAM [Suspect]
     Active Substance: ALPRAZOLAM
     Indication: Product used for unknown indication
     Dosage: UNK
     Route: 065
  6. ALPRAZOLAM [Suspect]
     Active Substance: ALPRAZOLAM
     Dosage: UNK (INGESTION)
     Route: 048
  7. OXYCODONE [Suspect]
     Active Substance: OXYCODONE
     Indication: Product used for unknown indication
     Dosage: UNK
     Route: 065
  8. OXYCODONE [Suspect]
     Active Substance: OXYCODONE
     Dosage: UNK (INGESTION)
     Route: 048
  9. KETAMINE [Suspect]
     Active Substance: KETAMINE
     Indication: Product used for unknown indication
     Dosage: UNK
     Route: 042

REACTIONS (3)
  - Cardio-respiratory arrest [Fatal]
  - Completed suicide [Fatal]
  - Maternal exposure during pregnancy [Fatal]
